FAERS Safety Report 9242466 (Version 1)
Quarter: 2013Q2

REPORT INFORMATION
  Report Type: Spontaneous
  Country: US (occurrence: US)
  Receive Date: 20130419
  Receipt Date: 20130419
  Transmission Date: 20140414
  Serious: No
  Sender: FDA-Public Use
  Company Number: US-PFIZER INC-2013120329

PATIENT
  Age: 78 Year
  Sex: Female
  Weight: 68.03 kg

DRUGS (5)
  1. XALKORI [Suspect]
     Dosage: 250 MG, 1X/DAY
     Route: 048
  2. ZOCOR [Concomitant]
     Dosage: 5 MG, UNK
  3. FUROSEMIDE [Concomitant]
     Dosage: 20 MG, UNK
  4. LEVOTHROID [Concomitant]
     Dosage: 100 UG, UNK
  5. POTASSIUM [Concomitant]
     Dosage: 75 MG, UNK

REACTIONS (3)
  - Disease progression [Unknown]
  - Neoplasm malignant [Unknown]
  - Weight decreased [Unknown]
